FAERS Safety Report 11687441 (Version 1)
Quarter: 2015Q4

REPORT INFORMATION
  Report Type: Other
  Country: DK (occurrence: IT)
  Receive Date: 20151030
  Receipt Date: 20151030
  Transmission Date: 20160304
  Serious: Yes (Other)
  Sender: FDA-Public Use
  Company Number: IT-FRI-1000080515

PATIENT
  Age: 23 Year
  Sex: Male

DRUGS (3)
  1. CITALOPRAM [Suspect]
     Active Substance: CITALOPRAM HYDROBROMIDE
     Indication: DEPRESSION
     Dosage: UPTITRATING FROM 20MG TO 100MG
     Route: 065
  2. LORAZEPAM. [Concomitant]
     Active Substance: LORAZEPAM
     Indication: PRODUCT USED FOR UNKNOWN INDICATION
     Route: 065
  3. CITALOPRAM [Suspect]
     Active Substance: CITALOPRAM HYDROBROMIDE
     Dosage: OVERDOSE: 100 MG DAILY

REACTIONS (8)
  - Nicotine dependence [Recovered/Resolved]
  - Prescribed overdose [Recovered/Resolved]
  - Aggression [Recovered/Resolved]
  - Delusion [Recovered/Resolved]
  - Restlessness [Recovered/Resolved]
  - Physical assault [Recovered/Resolved]
  - Dysphoria [Recovered/Resolved]
  - Anxiety [Recovered/Resolved]
